FAERS Safety Report 6695822 (Version 2)
Quarter: 2013Q3

REPORT INFORMATION
  Report Type: Report from Study
  Country: NO (occurrence: NO)
  Receive Date: 20080710
  Receipt Date: 20130919
  Transmission Date: 20140515
  Serious: Yes (Other)
  Sender: FDA-Public Use
  Company Number: NO-JNJFOC-20080701499

PATIENT
  Sex: Female

DRUGS (2)
  1. TOPIMAX [Suspect]
     Indication: EPILEPSY
     Route: 048
  2. OXCARBAZEPIN [Suspect]
     Indication: EPILEPSY
     Route: 048

REACTIONS (2)
  - Abortion spontaneous [Recovered/Resolved]
  - Exposure during pregnancy [Recovered/Resolved]
